FAERS Safety Report 8491017-9 (Version None)
Quarter: 2012Q2

REPORT INFORMATION
  Report Type: 
  Country: None (occurrence: None)
  Receive Date: 20120627
  Receipt Date: 20120619
  Transmission Date: 20120825
  Serious: Yes (Hospitalization)
  Sender: FDA-Public Use
  Company Number: JPI-P-022146

PATIENT
  Age: 37 Year
  Sex: Female

DRUGS (1)
  1. XYREM [Suspect]
     Indication: PRODUCT USED FOR UNKNOWN INDICATION
     Dosage: ORAL
     Route: 048
     Dates: start: 20070103

REACTIONS (10)
  - DIZZINESS [None]
  - URINARY TRACT INFECTION [None]
  - PHARYNGITIS STREPTOCOCCAL [None]
  - ANXIETY [None]
  - HYPERSENSITIVITY [None]
  - FATIGUE [None]
  - PAIN [None]
  - PULMONARY EMBOLISM [None]
  - FUNGAL SKIN INFECTION [None]
  - TOOTH DISORDER [None]
